FAERS Safety Report 7270210-7 (Version None)
Quarter: 2011Q1

REPORT INFORMATION
  Report Type: 
  Country: None (occurrence: None)
  Receive Date: 20110125
  Receipt Date: 20110113
  Transmission Date: 20110831
  Serious: No
  Sender: FDA-Public Use
  Company Number: 025351

PATIENT
  Sex: Male
  Weight: 89 kg

DRUGS (8)
  1. PANTOZOL /01263202/ [Concomitant]
  2. KEPPRA [Concomitant]
  3. LACOSAMIDE [Suspect]
     Indication: EPILEPSY
     Dosage: (100 MG, ORAL) ; (200 MG, ORAL) ; (300 MG, ORAL) ; (400 MG, ORAL)
     Route: 048
     Dates: start: 20090119, end: 20090125
  4. LACOSAMIDE [Suspect]
     Indication: EPILEPSY
     Dosage: (100 MG, ORAL) ; (200 MG, ORAL) ; (300 MG, ORAL) ; (400 MG, ORAL)
     Route: 048
     Dates: start: 20090126, end: 20090201
  5. LACOSAMIDE [Suspect]
     Indication: EPILEPSY
     Dosage: (100 MG, ORAL) ; (200 MG, ORAL) ; (300 MG, ORAL) ; (400 MG, ORAL)
     Route: 048
     Dates: start: 20090202
  6. LACOSAMIDE [Suspect]
     Indication: EPILEPSY
     Dosage: (100 MG, ORAL) ; (200 MG, ORAL) ; (300 MG, ORAL) ; (400 MG, ORAL)
     Route: 048
     Dates: start: 20090112, end: 20090118
  7. TOPIRAMATE [Concomitant]
  8. LORAZEPAM [Concomitant]

REACTIONS (1)
  - NO ADVERSE EVENT [None]
